FAERS Safety Report 7417768-2 (Version None)
Quarter: 2011Q2

REPORT INFORMATION
  Report Type: 
  Country: None (occurrence: None)
  Receive Date: 20110415
  Receipt Date: 20110404
  Transmission Date: 20111010
  Serious: Yes (Other)
  Sender: FDA-Public Use
  Company Number: FR-PFIZER INC-2011074714

PATIENT
  Age: 53 Year
  Sex: Female

DRUGS (3)
  1. VFEND [Suspect]
     Dosage: UNK
     Route: 048
     Dates: start: 20100408, end: 20100429
  2. VFEND [Suspect]
     Dosage: UNK
     Route: 048
     Dates: start: 20100506, end: 20100816
  3. ARACYTINE [Concomitant]

REACTIONS (2)
  - PHOTOSENSITIVITY REACTION [None]
  - HEPATOCELLULAR INJURY [None]
